FAERS Safety Report 6077412-6 (Version None)
Quarter: 2009Q1

REPORT INFORMATION
  Report Type: 
  Country: None (occurrence: None)
  Receive Date: 20090126
  Receipt Date: 20071203
  Transmission Date: 20090719
  Serious: Yes (Hospitalization)
  Sender: FDA-Public Use
  Company Number: WAES 0712USA02141

PATIENT
  Age: 50 Year
  Sex: Female

DRUGS (1)
  1. PRIMAXIN [Suspect]
     Dosage: IV
     Route: 042
     Dates: start: 20071114

REACTIONS (1)
  - RASH [None]
